FAERS Safety Report 7166813-0 (Version None)
Quarter: 2010Q4

REPORT INFORMATION
  Report Type: 
  Country: None (occurrence: None)
  Receive Date: 20101216
  Receipt Date: 20101208
  Transmission Date: 20110411
  Serious: Yes (Other)
  Sender: FDA-Public Use
  Company Number: JP-AMGEN-JPNCT2010009365

PATIENT

DRUGS (11)
  1. PANITUMUMAB [Suspect]
     Indication: COLORECTAL CANCER
     Dosage: 6 MG/KG, Q2WK
     Route: 041
     Dates: start: 20100927, end: 20100927
  2. ELPLAT [Suspect]
     Indication: COLORECTAL CANCER
     Route: 041
     Dates: start: 20100927, end: 20101103
  3. FLUOROURACIL [Suspect]
     Indication: COLORECTAL CANCER
     Route: 040
     Dates: start: 20100927, end: 20101103
  4. FLUOROURACIL [Suspect]
     Route: 041
     Dates: start: 20100927, end: 20101103
  5. CALCIUM LEVOFOLINATE [Concomitant]
     Indication: COLORECTAL CANCER
     Route: 041
     Dates: start: 20100927, end: 20101103
  6. GRANISETRON HCL [Concomitant]
     Route: 042
  7. DECADRON [Concomitant]
     Route: 042
  8. ALOXI [Concomitant]
     Route: 042
  9. DEXAMETHASONE [Concomitant]
     Route: 048
  10. EMEND [Concomitant]
     Route: 048
  11. PRIMPERAN TAB [Concomitant]
     Route: 048

REACTIONS (4)
  - ASTHENIA [None]
  - DERMATITIS [None]
  - FATIGUE [None]
  - MALAISE [None]
